FAERS Safety Report 13146953 (Version 1)
Quarter: 2017Q1

REPORT INFORMATION
  Report Type: Spontaneous
  Country: US (occurrence: US)
  Receive Date: 20170125
  Receipt Date: 20170125
  Transmission Date: 20170428
  Serious: Yes (Death, Other)
  Sender: FDA-Public Use
  Company Number: US-APOTEX-2017AP005965

PATIENT
  Age: 5 Decade
  Sex: Male

DRUGS (4)
  1. ZOLPIDEM TARTRATE. [Suspect]
     Active Substance: ZOLPIDEM TARTRATE
     Indication: INSOMNIA
     Dosage: 5 MG, UNK
     Route: 065
  2. ATORVASTATIN CALCIUM. [Suspect]
     Active Substance: ATORVASTATIN CALCIUM
     Indication: HYPERLIPIDAEMIA
     Dosage: 10 MG, UNK
     Route: 065
  3. ALPRAZOLAM. [Suspect]
     Active Substance: ALPRAZOLAM
     Indication: HYPERLIPIDAEMIA
     Route: 065
  4. FLONASE [Concomitant]
     Active Substance: FLUTICASONE PROPIONATE
     Indication: PRODUCT USED FOR UNKNOWN INDICATION
     Route: 065

REACTIONS (11)
  - Completed suicide [Fatal]
  - Insomnia [Unknown]
  - Memory impairment [Unknown]
  - Amnesia [Unknown]
  - Impatience [Unknown]
  - Personality change [Unknown]
  - Eczema [Unknown]
  - Depression [Unknown]
  - Abnormal behaviour [Unknown]
  - Deafness [Unknown]
  - Myalgia [Unknown]
